FAERS Safety Report 7555106-5 (Version None)
Quarter: 2011Q2

REPORT INFORMATION
  Report Type: 
  Country: None (occurrence: None)
  Receive Date: 20110617
  Receipt Date: 20110608
  Transmission Date: 20111010
  Serious: Yes (Hospitalization)
  Sender: FDA-Public Use
  Company Number: US-ASTRAZENECA-2011SE35398

PATIENT
  Age: 50 Year
  Sex: Female

DRUGS (2)
  1. CRESTOR [Suspect]
     Route: 048
  2. NEXIUM [Suspect]
     Route: 048

REACTIONS (6)
  - CEREBROVASCULAR ACCIDENT [None]
  - AORTIC ARTERIOSCLEROSIS [None]
  - OEDEMA PERIPHERAL [None]
  - SURGERY [None]
  - ABDOMINAL DISTENSION [None]
  - UPPER MOTOR NEURONE LESION [None]
